FAERS Safety Report 19998768 (Version 5)
Quarter: 2024Q4

REPORT INFORMATION
  Report Type: Spontaneous
  Country: US (occurrence: US)
  Receive Date: 20211027
  Receipt Date: 20241021
  Transmission Date: 20250115
  Serious: No
  Sender: ROCHE
  Company Number: US-ROCHE-2847344

PATIENT
  Age: 71 Year
  Sex: Female

DRUGS (5)
  1. COTELLIC [Suspect]
     Active Substance: COBIMETINIB
     Indication: Malignant melanoma
     Dosage: 40MG MONDAY, WEDNESDAY AND FRIDAY, 20MG TUESDAY, THURSDAY, SATURDAY AND SUNDAY 21 DAYS OFF FOR 7 DAY
     Route: 048
     Dates: start: 20211130
  2. COTELLIC [Suspect]
     Active Substance: COBIMETINIB
     Indication: Metastases to bone
     Route: 048
     Dates: start: 202202
  3. COTELLIC [Suspect]
     Active Substance: COBIMETINIB
     Route: 048
     Dates: start: 202104
  4. ZELBORAF [Suspect]
     Active Substance: VEMURAFENIB
     Indication: Illness
     Route: 048
     Dates: start: 20211002
  5. ZELBORAF [Suspect]
     Active Substance: VEMURAFENIB
     Indication: Malignant melanoma
     Route: 048
     Dates: start: 202103

REACTIONS (10)
  - Blood pressure increased [Unknown]
  - Acne [Unknown]
  - Photosensitivity reaction [Unknown]
  - Rash [Unknown]
  - Visual impairment [Unknown]
  - Contusion [Unknown]
  - Haemorrhage [Unknown]
  - Fatigue [Unknown]
  - Visual impairment [Unknown]
  - Diarrhoea [Unknown]
